FAERS Safety Report 10331184 (Version 1)
Quarter: 2014Q3

REPORT INFORMATION
  Report Type: Spontaneous
  Country: US (occurrence: None)
  Receive Date: 20140721
  Receipt Date: 20140721
  Transmission Date: 20150326
  Serious: Yes (Other)
  Sender: FDA-Public Use
  Company Number: None

PATIENT
  Age: 64 Year
  Sex: Male

DRUGS (1)
  1. XGEVA [Suspect]
     Active Substance: DENOSUMAB
     Indication: COLON CANCER
     Route: 058
     Dates: start: 20140529, end: 20140717

REACTIONS (2)
  - Metastatic neoplasm [None]
  - Drug ineffective [None]

NARRATIVE: CASE EVENT DATE: 20140718
